FAERS Safety Report 13579424 (Version 1)
Quarter: 2017Q2

REPORT INFORMATION
  Report Type: Spontaneous
  Country: US (occurrence: US)
  Receive Date: 20170524
  Receipt Date: 20170524
  Transmission Date: 20170830
  Serious: Yes (Life-Threatening, Hospitalization, Disabling, Other)
  Sender: FDA-Public Use
  Company Number: None

PATIENT
  Age: 62 Year
  Sex: Male
  Weight: 157.5 kg

DRUGS (57)
  1. ADVAIR HFA [Concomitant]
     Active Substance: FLUTICASONE PROPIONATE\SALMETEROL XINAFOATE
  2. FLUTICASONE. [Concomitant]
     Active Substance: FLUTICASONE
  3. OLOPATADINE HCL [Concomitant]
     Active Substance: OLOPATADINE HYDROCHLORIDE
  4. PANTOPRAZOLE SODIUM. [Concomitant]
     Active Substance: PANTOPRAZOLE SODIUM
  5. SULFAMETHOXAZOLE-TRIMETHOP [Concomitant]
  6. EZETIMIBE. [Suspect]
     Active Substance: EZETIMIBE
     Indication: BLOOD CHOLESTEROL
     Route: 048
     Dates: end: 20160805
  7. ALCOHOL PAD [Concomitant]
     Active Substance: ISOPROPYL ALCOHOL
  8. ATENONOL [Concomitant]
  9. ATORVASTATIN [Concomitant]
     Active Substance: ATORVASTATIN
  10. FENOFIBRIC ACID. [Concomitant]
     Active Substance: FENOFIBRIC ACID
  11. FREESTYLE LITE LANCETS [Concomitant]
  12. FREESTYLE LITE STRIPS [Concomitant]
  13. NYSTOP [Concomitant]
     Active Substance: NYSTATIN
  14. SYNTHROID [Concomitant]
     Active Substance: LEVOTHYROXINE SODIUM
  15. VITAMIN D3 [Concomitant]
     Active Substance: CHOLECALCIFEROL
  16. ABILIFY [Concomitant]
     Active Substance: ARIPIPRAZOLE
  17. COLONAZEPAM [Concomitant]
  18. LIDOCAINE. [Concomitant]
     Active Substance: LIDOCAINE
  19. LYRICA [Concomitant]
     Active Substance: PREGABALIN
  20. METFORMIN [Concomitant]
     Active Substance: METFORMIN HYDROCHLORIDE
  21. MICRONAZOLE NITRATE [Concomitant]
  22. MUPIROCIN. [Concomitant]
     Active Substance: MUPIROCIN
  23. VALSARTAN. [Concomitant]
     Active Substance: VALSARTAN
  24. VIT A [Concomitant]
  25. EZETIMIBE. [Suspect]
     Active Substance: EZETIMIBE
     Indication: DIABETES MELLITUS
     Route: 048
     Dates: end: 20160805
  26. BACLOFEN. [Concomitant]
     Active Substance: BACLOFEN
  27. ERYTHROMYCIN. [Concomitant]
     Active Substance: ERYTHROMYCIN
  28. NYSTATIN. [Concomitant]
     Active Substance: NYSTATIN
  29. CLONODINE HCL [Concomitant]
  30. NIACIN. [Concomitant]
     Active Substance: NIACIN
  31. SPIRIVA [Concomitant]
     Active Substance: TIOTROPIUM BROMIDE MONOHYDRATE
  32. CLOBETASOL [Concomitant]
     Active Substance: CLOBETASOL
  33. DOXYCYCLINE HYCLATE. [Concomitant]
     Active Substance: DOXYCYCLINE HYCLATE
  34. FENTANYL. [Concomitant]
     Active Substance: FENTANYL
  35. HYDROXYZINE HCL [Concomitant]
     Active Substance: HYDROXYZINE HYDROCHLORIDE
  36. MONTELUKAST NACL [Concomitant]
  37. MUCUS ER [Concomitant]
     Active Substance: GUAIFENESIN
  38. MYRBETRIQ [Concomitant]
     Active Substance: MIRABEGRON
  39. PREDNISONE. [Concomitant]
     Active Substance: PREDNISONE
  40. PROAIR HFA [Concomitant]
     Active Substance: ALBUTEROL SULFATE
  41. ALBUTEROL. [Concomitant]
     Active Substance: ALBUTEROL
  42. NACL [Concomitant]
     Active Substance: SODIUM CHLORIDE
  43. AMOX-TR-POTASSIUM CLUVANATE [Concomitant]
  44. GLIMIPIRIDE [Concomitant]
     Active Substance: GLIMEPIRIDE
  45. HUMALOG KWIK [Concomitant]
  46. JANUVIA [Concomitant]
     Active Substance: SITAGLIPTIN PHOSPHATE
  47. POTASSIUM HCL [Concomitant]
  48. ULTICARE PINS [Concomitant]
  49. PROBIOTIC [Concomitant]
     Active Substance: PROBIOTICS NOS
  50. WARFARIN [Concomitant]
     Active Substance: WARFARIN
  51. ALENDRONATE [Concomitant]
     Active Substance: ALENDRONATE SODIUM
  52. DULOXETINE HCL [Concomitant]
     Active Substance: DULOXETINE HYDROCHLORIDE
  53. FUROSIMIDE [Concomitant]
     Active Substance: FUROSEMIDE
  54. HUMALOG [Concomitant]
     Active Substance: INSULIN LISPRO
  55. HYDROCODONE ACE [Concomitant]
  56. KETOCONAZOLE. [Concomitant]
     Active Substance: KETOCONAZOLE
  57. TAMSULOSIN HCL [Concomitant]
     Active Substance: TAMSULOSIN

REACTIONS (10)
  - Blood glucose decreased [None]
  - Dyspnoea [None]
  - Mouth haemorrhage [None]
  - Blood pressure decreased [None]
  - Internal haemorrhage [None]
  - Rectal haemorrhage [None]
  - Pruritus [None]
  - Product substitution issue [None]
  - Urticaria [None]
  - Swelling [None]

NARRATIVE: CASE EVENT DATE: 20160721
